FAERS Safety Report 8524661-0 (Version None)
Quarter: 2012Q3

REPORT INFORMATION
  Report Type: 
  Country: None (occurrence: None)
  Receive Date: 20120720
  Receipt Date: 20120708
  Transmission Date: 20120928
  Serious: Yes (Hospitalization, Other)
  Sender: FDA-Public Use
  Company Number: DE-ROCHE-1089478

PATIENT
  Age: 48 Year
  Sex: Male

DRUGS (5)
  1. OXALIPLATIN [Suspect]
     Indication: PANCREATIC CARCINOMA METASTATIC
     Dates: start: 20090701, end: 20100401
  2. GEMCITABINE [Concomitant]
     Indication: PANCREATIC CARCINOMA METASTATIC
     Dates: start: 20070227, end: 20090715
  3. GRANOCYTE [Concomitant]
  4. XELODA [Suspect]
     Indication: PANCREATIC CARCINOMA METASTATIC
     Dates: start: 20090701, end: 20100401
  5. TARCEVA [Suspect]
     Indication: PANCREATIC CARCINOMA METASTATIC
     Dates: start: 20070227, end: 20090715

REACTIONS (7)
  - NEOPLASM MALIGNANT [None]
  - VOMITING [None]
  - JAUNDICE [None]
  - RASH [None]
  - ANAEMIA [None]
  - MALIGNANT ASCITES [None]
  - NAUSEA [None]
